FAERS Safety Report 14439603 (Version 1)
Quarter: 2018Q1

REPORT INFORMATION
  Report Type: Spontaneous
  Country: US (occurrence: US)
  Receive Date: 20180125
  Receipt Date: 20180125
  Transmission Date: 20180509
  Serious: Yes (Hospitalization)
  Sender: FDA-Public Use
  Company Number: US-UNITED THERAPEUTICS-UNT-2017-014724

PATIENT
  Age: 22 Year
  Sex: Female
  Weight: 42.63 kg

DRUGS (2)
  1. WARFARIN [Concomitant]
     Active Substance: WARFARIN
     Indication: PRODUCT USED FOR UNKNOWN INDICATION
     Route: 065
  2. REMODULIN [Suspect]
     Active Substance: TREPROSTINIL
     Indication: PULMONARY ARTERIAL HYPERTENSION
     Dosage: 0.066 ?G/KG, CONTINUING
     Route: 058
     Dates: start: 20170725, end: 201711

REACTIONS (3)
  - Infusion site cellulitis [Recovered/Resolved]
  - Infusion site pain [Recovered/Resolved]
  - Weight fluctuation [Recovered/Resolved]

NARRATIVE: CASE EVENT DATE: 2017
